FAERS Safety Report 5635859-3 (Version None)
Quarter: 2008Q1

REPORT INFORMATION
  Report Type: 
  Country: None (occurrence: None)
  Receive Date: 20080221
  Receipt Date: 20080208
  Transmission Date: 20080703
  Serious: Yes (Hospitalization, Other)
  Sender: FDA-Public Use
  Company Number: 2008JP000762

PATIENT
  Sex: Female

DRUGS (5)
  1. PROGRAF [Suspect]
     Indication: RENAL TRANSPLANT
  2. STEROID [Concomitant]
  3. CYCLOSPORINE [Concomitant]
  4. MIZORBINE (MIZORBINE) [Concomitant]
  5. SIMULECT [Concomitant]

REACTIONS (2)
  - NEPHROTIC SYNDROME [None]
  - PLASMAPHERESIS [None]
